FAERS Safety Report 9288609 (Version 1)
Quarter: 2012Q4

REPORT INFORMATION
  Report Type: Spontaneous
  Country: US (occurrence: None)
  Receive Date: 20120918
  Receipt Date: 20120918
  Transmission Date: 20130627
  Serious: Yes (Other)
  Sender: FDA-Public Use
  Company Number: PI-07888

PATIENT
  Age: 2 Month
  Sex: Male

DRUGS (2)
  1. CHLORAPREP (2% CHG/70%/PA) WITH TINT (FD+C YELLOW#6) [Suspect]
     Indication: PREOPERATIVE CARE
     Route: 061
     Dates: start: 20120125
  2. CHLORAPREP (2% CHG/70%/PA) WITH TINT (FD+C YELLOW#6) [Suspect]
     Indication: THERAPEUTIC SKIN CARE TOPICAL
     Route: 061
     Dates: start: 20120125

REACTIONS (3)
  - Thermal burn [None]
  - Erythema [None]
  - Blister [None]
